FAERS Safety Report 13765867 (Version 1)
Quarter: 2017Q3

REPORT INFORMATION
  Report Type: Report from Study
  Country: US (occurrence: US)
  Receive Date: 20170718
  Receipt Date: 20170718
  Transmission Date: 20171127
  Serious: Yes (Other)
  Sender: FDA-Public Use
  Company Number: US-GILEAD-2017-0283490

PATIENT
  Age: 83 Year
  Sex: Female

DRUGS (1)
  1. RANOLAZINE. [Suspect]
     Active Substance: RANOLAZINE
     Indication: CORONARY ARTERY OCCLUSION
     Dosage: 500 MG,
     Route: 048
     Dates: start: 201103

REACTIONS (3)
  - Off label use [Not Recovered/Not Resolved]
  - Stent placement [Unknown]
  - Chest pain [Unknown]
